FAERS Safety Report 4626733-X (Version None)
Quarter: 2005Q2

REPORT INFORMATION
  Report Type: 
  Country: None (occurrence: None)
  Receive Date: 20050405
  Receipt Date: 20050323
  Transmission Date: 20051028
  Serious: Yes (Hospitalization, Other)
  Sender: FDA-Public Use
  Company Number: 200512391US

PATIENT
  Age: 34 Year
  Sex: Male

DRUGS (2)
  1. KETEK [Suspect]
     Indication: PNEUMONIA
     Dosage: DOSE: TWO 400MG TABLETS
     Dates: start: 20050321, end: 20050321
  2. PYRIDOSTIGMINE BROMIDE [Concomitant]
     Indication: MYASTHENIA GRAVIS
     Dosage: DOSE: UNK

REACTIONS (8)
  - BLOOD PRESSURE INCREASED [None]
  - CYANOSIS [None]
  - DYSPNOEA [None]
  - HEART RATE INCREASED [None]
  - HYPERHIDROSIS [None]
  - MYASTHENIA GRAVIS [None]
  - RHONCHI [None]
  - THROAT TIGHTNESS [None]
